FAERS Safety Report 7310843-2 (Version None)
Quarter: 2011Q1

REPORT INFORMATION
  Report Type: 
  Country: None (occurrence: None)
  Receive Date: 20110224
  Receipt Date: 20110223
  Transmission Date: 20110831
  Serious: Yes (Hospitalization)
  Sender: FDA-Public Use
  Company Number: DE-SANOFI-AVENTIS-2011SA011224

PATIENT
  Sex: Male
  Weight: 74 kg

DRUGS (1)
  1. MULTAQ [Suspect]
     Route: 048
     Dates: start: 20100401, end: 20110129

REACTIONS (9)
  - HEART RATE DECREASED [None]
  - GASTROINTESTINAL DISORDER [None]
  - DYSPNOEA [None]
  - NIGHTMARE [None]
  - BALANCE DISORDER [None]
  - OEDEMA PERIPHERAL [None]
  - NAUSEA [None]
  - FATIGUE [None]
  - ASTHENIA [None]
